FAERS Safety Report 7597927-9 (Version None)
Quarter: 2011Q3

REPORT INFORMATION
  Report Type: 
  Country: None (occurrence: None)
  Receive Date: 20110708
  Receipt Date: 20110623
  Transmission Date: 20111222
  Serious: Yes (Death)
  Sender: FDA-Public Use
  Company Number: IN-GENENTECH-275371

PATIENT
  Age: 86 Year
  Sex: Male
  Weight: 55 kg

DRUGS (6)
  1. LUCENTIS [Suspect]
     Dosage: 0.5 MG, UNKNOWN
     Route: 031
     Dates: start: 20080322
  2. LUCENTIS [Suspect]
     Dosage: 0.5 MG, UNKNOWN
     Route: 031
     Dates: start: 20080728
  3. LUCENTIS [Suspect]
     Indication: CHOROIDAL NEOVASCULARISATION
     Dosage: 0.5 MG, UNKNOWN
     Route: 031
     Dates: start: 20071015
  4. LUCENTIS [Suspect]
     Dosage: 0.5 MG, UNKNOWN
     Route: 031
     Dates: start: 20071116
  5. VERTEPORFIN [Suspect]
     Indication: CHOROIDAL NEOVASCULARISATION
     Dosage: UNK UNK, UNKNOWN
     Route: 065
  6. LUCENTIS [Suspect]
     Dosage: 0.5 MG, UNKNOWN
     Route: 031
     Dates: start: 20071220

REACTIONS (3)
  - DETACHMENT OF RETINAL PIGMENT EPITHELIUM [None]
  - CARDIAC ARREST [None]
  - RETINAL HAEMORRHAGE [None]
